FAERS Safety Report 5865639-5 (Version None)
Quarter: 2008Q3

REPORT INFORMATION
  Report Type: 
  Country: None (occurrence: None)
  Receive Date: 20080829
  Receipt Date: 20080826
  Transmission Date: 20090109
  Serious: Yes (Hospitalization)
  Sender: FDA-Public Use
  Company Number: JP-ASTRAZENECA-2008AP05795

PATIENT
  Age: 75 Year
  Sex: Female
  Weight: 58 kg

DRUGS (7)
  1. IRESSA [Suspect]
     Indication: LUNG ADENOCARCINOMA
     Route: 048
     Dates: start: 20080408, end: 20080514
  2. IRESSA [Suspect]
     Route: 048
     Dates: start: 20080620
  3. OXYCONTIN [Concomitant]
     Indication: CANCER PAIN
     Route: 048
     Dates: start: 20080313
  4. MAGLAX [Concomitant]
     Indication: CONSTIPATION
     Route: 048
     Dates: start: 20080324
  5. NOVAMIN [Concomitant]
     Indication: NAUSEA
     Route: 048
     Dates: start: 20080324
  6. ANAFRANIL [Concomitant]
     Indication: DEPRESSION
     Route: 041
     Dates: start: 20080522, end: 20080627
  7. PAXIL [Concomitant]
     Indication: DEPRESSION
     Route: 048
     Dates: start: 20080628

REACTIONS (3)
  - ALOPECIA [None]
  - ANAEMIA [None]
  - WHITE BLOOD CELL COUNT DECREASED [None]
